FAERS Safety Report 4439333-1 (Version None)
Quarter: 2004Q3

REPORT INFORMATION
  Report Type: 
  Country: None (occurrence: None)
  Receive Date: 20040831
  Receipt Date: 20040812
  Transmission Date: 20050211
  Serious: Yes (Disabling)
  Sender: FDA-Public Use
  Company Number: A03200402381

PATIENT
  Age: 56 Year
  Sex: Male
  Weight: 116.1208 kg

DRUGS (10)
  1. UROXATRAL [Suspect]
     Indication: BENIGN PROSTATIC HYPERPLASIA
     Dosage: 10 MG OD - ORAL
     Route: 048
     Dates: start: 20040607, end: 20040626
  2. UROXATRAL [Suspect]
     Indication: POLLAKIURIA
     Dosage: 10 MG OD - ORAL
     Route: 048
     Dates: start: 20040607, end: 20040626
  3. UROXATRAL [Suspect]
     Indication: PROSTATIC OBSTRUCTION
     Dosage: 10 MG OD - ORAL
     Route: 048
     Dates: start: 20040607, end: 20040626
  4. UROXATRAL [Suspect]
     Indication: BENIGN PROSTATIC HYPERPLASIA
     Dosage: 10 MG OD - ORAL
     Route: 048
     Dates: start: 20040607, end: 20040626
  5. UROXATRAL [Suspect]
     Indication: POLLAKIURIA
     Dosage: 10 MG OD - ORAL
     Route: 048
     Dates: start: 20040607, end: 20040626
  6. UROXATRAL [Suspect]
     Indication: PROSTATIC OBSTRUCTION
     Dosage: 10 MG OD - ORAL
     Route: 048
     Dates: start: 20040607, end: 20040626
  7. GLIPIZIDE [Concomitant]
  8. ENALAPRIL [Concomitant]
  9. SALMETEROL XINAFOATE [Concomitant]
  10. BUDESONIDE [Concomitant]

REACTIONS (1)
  - PAIN IN EXTREMITY [None]
